FAERS Safety Report 4630126-9 (Version None)
Quarter: 2005Q2

REPORT INFORMATION
  Report Type: 
  Country: None (occurrence: None)
  Receive Date: 20050408
  Receipt Date: 20050330
  Transmission Date: 20051028
  Serious: Yes (Death)
  Sender: FDA-Public Use
  Company Number: GB-GLAXOSMITHKLINE-B0376247A

PATIENT
  Sex: Female

DRUGS (4)
  1. DIGOXIN [Suspect]
     Dosage: 62.5MG UNKNOWN
     Route: 048
     Dates: end: 20040818
  2. ASPIRIN [Suspect]
     Dosage: 75MG UNKNOWN
     Route: 048
     Dates: end: 20040818
  3. FERROUS SULFATE TAB [Concomitant]
     Dosage: 200MG THREE TIMES PER DAY
     Route: 048
  4. SENNA [Concomitant]
     Route: 065

REACTIONS (3)
  - DRUG EXPOSURE DURING PREGNANCY [None]
  - LARGE INTESTINAL ULCER [None]
  - PERITONITIS [None]
